FAERS Safety Report 4439994-7 (Version None)
Quarter: 2004Q3

REPORT INFORMATION
  Report Type: 
  Country: None (occurrence: None)
  Receive Date: 20040831
  Receipt Date: 20040603
  Transmission Date: 20050211
  Serious: No
  Sender: FDA-Public Use
  Company Number: 701782

PATIENT
  Sex: Female

DRUGS (4)
  1. AMEVIVE [Suspect]
     Indication: PSORIASIS
     Dosage: 15 MG QW IM
     Route: 030
     Dates: start: 20030708, end: 20031002
  2. MAXZIDE [Concomitant]
  3. SYNTHROID [Concomitant]
  4. ZOLOFT [Concomitant]

REACTIONS (1)
  - RESPIRATORY TRACT INFECTION [None]
